FAERS Safety Report 19952254 (Version 1)
Quarter: 2021Q4

REPORT INFORMATION
  Report Type: Spontaneous
  Country: JP (occurrence: JP)
  Receive Date: 20211014
  Receipt Date: 20211014
  Transmission Date: 20220303
  Serious: Yes (Death, Other)
  Sender: FDA-Public Use
  Company Number: JP-SUN PHARMACEUTICAL INDUSTRIES LTD-2021RR-314055

PATIENT
  Age: 46 Year
  Sex: Male

DRUGS (9)
  1. SUNITINIB [Suspect]
     Active Substance: SUNITINIB
     Indication: Renal cell carcinoma stage II
     Dosage: 37.5 MILLIGRAM, DAILY
     Route: 065
     Dates: start: 201406
  2. SUNITINIB [Suspect]
     Active Substance: SUNITINIB
     Indication: Metastases to bone
  3. ZOLEDRONIC ACID [Suspect]
     Active Substance: ZOLEDRONIC ACID
     Indication: Renal cell carcinoma stage II
     Dosage: 4 MILLIGRAM, MONTHLY
     Route: 065
     Dates: start: 201406
  4. ZOLEDRONIC ACID [Suspect]
     Active Substance: ZOLEDRONIC ACID
     Indication: Metastases to bone
  5. TEMSIROLIMUS [Concomitant]
     Active Substance: TEMSIROLIMUS
     Indication: Renal cell carcinoma
     Dosage: UNK
     Route: 065
  6. Axititnib [Concomitant]
     Indication: Renal cell carcinoma
     Dosage: 10 MILLIGRAM, DAILY, 5 DAYS ON, 2 DAYS OFF
     Route: 065
     Dates: start: 201407
  7. Axititnib [Concomitant]
     Dosage: 8 MILLIGRAM, DAILY, 5 DAYS ON, 2 DAYS OFF
     Route: 065
     Dates: start: 201412
  8. Axititnib [Concomitant]
     Dosage: 8 MILLIGRAM, DAILY, 4 DAYS ON, 3 DAYS OFF
     Route: 065
     Dates: start: 201704
  9. Axititnib [Concomitant]
     Dosage: 8 MILLIGRAM, DAILY, 3 DAYS ON, 3 DAYS OFF
     Route: 065
     Dates: start: 201804, end: 201910

REACTIONS (5)
  - Disease progression [Unknown]
  - Pyrexia [Recovered/Resolved]
  - Liver disorder [Recovered/Resolved]
  - Malaise [Recovered/Resolved]
  - Compression fracture [Unknown]

NARRATIVE: CASE EVENT DATE: 20170601
